FAERS Safety Report 7421635-8 (Version None)
Quarter: 2011Q2

REPORT INFORMATION
  Report Type: 
  Country: None (occurrence: None)
  Receive Date: 20110418
  Receipt Date: 20110406
  Transmission Date: 20111010
  Serious: Yes (Hospitalization)
  Sender: FDA-Public Use
  Company Number: US-ACTELION-A-US2010-38786

PATIENT

DRUGS (16)
  1. REVATIO [Concomitant]
  2. SINEMET [Concomitant]
  3. SIMVASTATIN [Concomitant]
  4. TRACLEER [Suspect]
     Indication: PULMONARY ARTERIAL HYPERTENSION
     Dosage: 125 MG, BID
     Route: 048
  5. METOPROLOL [Concomitant]
  6. LUNESTA [Concomitant]
  7. FOLIC ACID [Concomitant]
  8. ASPIRIN [Concomitant]
  9. TRACLEER [Suspect]
     Dosage: 62.5 MG, BID
     Route: 048
     Dates: start: 20070319
  10. CALCIUM CHANNEL BLOCKERS [Concomitant]
  11. COMTAN [Concomitant]
  12. POTASSIUM CHLORIDE [Concomitant]
  13. LISINOPRIL [Concomitant]
  14. ZOLOFT [Concomitant]
  15. LASIX [Concomitant]
  16. VITAMINS [Concomitant]

REACTIONS (9)
  - PCO2 INCREASED [None]
  - FALL [None]
  - ENDOTRACHEAL INTUBATION [None]
  - RESPIRATORY FAILURE [None]
  - MENTAL STATUS CHANGES [None]
  - BRONCHIAL SECRETION RETENTION [None]
  - PNEUMONIA ASPIRATION [None]
  - HEART RATE INCREASED [None]
  - PNEUMONIA [None]
